FAERS Safety Report 25425621 (Version 1)
Quarter: 2025Q2

REPORT INFORMATION
  Report Type: Report from Study
  Country: KR (occurrence: KR)
  Receive Date: 20250611
  Receipt Date: 20250611
  Transmission Date: 20250717
  Serious: Yes (Death, Other)
  Sender: ABBVIE
  Company Number: KR-ABBVIE-6279240

PATIENT
  Age: 65 Year
  Sex: Male
  Weight: 65 kg

DRUGS (26)
  1. VENCLEXTA [Suspect]
     Active Substance: VENETOCLAX
     Indication: Acute myeloid leukaemia
     Route: 048
     Dates: start: 20250318, end: 20250318
  2. VENCLEXTA [Suspect]
     Active Substance: VENETOCLAX
     Indication: Acute myeloid leukaemia
     Route: 048
     Dates: start: 20250317, end: 20250317
  3. VENCLEXTA [Suspect]
     Active Substance: VENETOCLAX
     Indication: Acute myeloid leukaemia
     Route: 048
     Dates: start: 20250319, end: 20250414
  4. MONTMORILLONITE [Concomitant]
     Active Substance: MONTMORILLONITE
     Indication: Prophylaxis against diarrhoea
     Route: 048
     Dates: start: 20250322, end: 20250414
  5. WINUF [Concomitant]
     Indication: Asthenia
     Dosage: INJ 736ML
     Route: 042
     Dates: start: 20250331, end: 20250424
  6. DAEWON MORPHINE SULFATE HYDRATE [Concomitant]
     Indication: Abdominal pain
     Route: 042
     Dates: start: 20250423, end: 20250424
  7. HYDRINE [Concomitant]
     Indication: Acute myeloid leukaemia
     Dosage: CAP 500MG
     Route: 048
     Dates: start: 20250417, end: 20250422
  8. FEXOSTA [Concomitant]
     Indication: Prophylaxis
     Dosage: TAB
     Route: 048
     Dates: start: 20250318, end: 20250320
  9. BENZYDAMINE HYDROCHLORIDE [Concomitant]
     Active Substance: BENZYDAMINE HYDROCHLORIDE
     Indication: Mucosal inflammation
     Dosage: 100ML
     Dates: start: 20250308, end: 20250422
  10. MAXIPIME [Concomitant]
     Active Substance: CEFEPIME HYDROCHLORIDE
     Indication: Mucosal inflammation
     Route: 042
     Dates: start: 20250322, end: 20250421
  11. DECILID [Concomitant]
     Indication: Acute myeloid leukaemia
     Dosage: INJ 40MG
     Route: 042
     Dates: start: 20250317, end: 20250321
  12. TASNA [Concomitant]
     Indication: Prophylaxis
     Dosage: TAB 500MG
     Route: 048
     Dates: start: 20250410, end: 20250424
  13. NEXIUM I.V. [Concomitant]
     Active Substance: ESOMEPRAZOLE SODIUM
     Indication: Pain prophylaxis
     Route: 042
     Dates: start: 20250308, end: 20250424
  14. TAZOPERAN [Concomitant]
     Indication: Mucosal inflammation
     Dosage: INJ 4.5G
     Route: 042
     Dates: start: 20250308, end: 20250321
  15. PROPACETAMOL HYDROCHLORIDE [Concomitant]
     Active Substance: PROPACETAMOL HYDROCHLORIDE
     Indication: Pyrexia
     Route: 042
     Dates: start: 20250322, end: 20250322
  16. OLMEC [Concomitant]
     Indication: Hypertension
     Dosage: TAB
     Route: 048
     Dates: start: 20250311, end: 20250423
  17. HUONS KAROS [Concomitant]
     Indication: Hyperkalaemia
     Route: 048
     Dates: start: 20250404, end: 20250405
  18. HYDROCORTISONE SODIUM SUCCINATE [Concomitant]
     Active Substance: HYDROCORTISONE SODIUM SUCCINATE
     Indication: Premedication
     Route: 042
     Dates: start: 20250314, end: 20250424
  19. ALPIT [Concomitant]
     Indication: Abdominal pain
     Route: 042
     Dates: start: 20250420, end: 20250423
  20. PENIRAMIN [Concomitant]
     Indication: Premedication
     Route: 042
     Dates: start: 20250314, end: 20250424
  21. ONEFLU [Concomitant]
     Indication: Mucosal inflammation
     Dosage: INJ 50ML
     Route: 042
     Dates: start: 20250313, end: 20250423
  22. MECKOOL [Concomitant]
     Indication: Prophylaxis of nausea and vomiting
     Route: 042
     Dates: start: 20250421, end: 20250422
  23. URCHOL [Concomitant]
     Indication: Prophylaxis
     Dosage: TAB 200MG
     Route: 048
     Dates: start: 20250317, end: 20250318
  24. ALBUMIN HUMAN [Concomitant]
     Active Substance: ALBUMIN HUMAN
     Indication: Hypoalbuminaemia
     Route: 042
     Dates: start: 20250410, end: 20250423
  25. ONDANT [Concomitant]
     Indication: Prophylaxis of nausea and vomiting
     Route: 042
     Dates: start: 20250317, end: 20250321
  26. ULTRACET [Concomitant]
     Active Substance: ACETAMINOPHEN\TRAMADOL HYDROCHLORIDE
     Indication: Gingival pain
     Dosage: TAB
     Route: 048
     Dates: start: 20250308, end: 20250423

REACTIONS (6)
  - Pneumonia [Fatal]
  - Pulmonary alveolar haemorrhage [Unknown]
  - Pulmonary oedema [Unknown]
  - Emphysema [Unknown]
  - Cardiomegaly [Unknown]
  - Pulmonary congestion [Unknown]

NARRATIVE: CASE EVENT DATE: 20250401
